FAERS Safety Report 23591833 (Version 3)
Quarter: 2024Q3

REPORT INFORMATION
  Report Type: Report from Study
  Country: DE (occurrence: DE)
  Receive Date: 20240304
  Receipt Date: 20240813
  Transmission Date: 20241016
  Serious: No
  Sender: ROCHE
  Company Number: DE-ROCHE-3138439

PATIENT
  Age: 37 Year
  Sex: Female

DRUGS (8)
  1. OCREVUS [Suspect]
     Active Substance: OCRELIZUMAB
     Indication: Relapsing multiple sclerosis
     Route: 042
     Dates: start: 20191018, end: 20191101
  2. OCREVUS [Suspect]
     Active Substance: OCRELIZUMAB
     Route: 042
     Dates: start: 20200430
  3. DIMETHINDENE MALEATE [Concomitant]
     Active Substance: DIMETHINDENE MALEATE
     Indication: Premedication
     Route: 042
     Dates: start: 20191018
  4. PANTOZOL [Concomitant]
     Active Substance: PANTOPRAZOLE SODIUM
     Indication: Premedication
     Route: 048
     Dates: start: 20191018
  5. ACETAMINOPHEN [Concomitant]
     Active Substance: ACETAMINOPHEN
     Indication: Premedication
     Route: 048
     Dates: start: 20191018
  6. COMIRNATY [Concomitant]
     Indication: COVID-19 immunisation
     Route: 030
     Dates: start: 20210922, end: 20210922
  7. COMIRNATY [Concomitant]
     Route: 030
     Dates: start: 20211014, end: 20211014
  8. PREDNISOLONE [Concomitant]
     Active Substance: PREDNISOLONE
     Indication: Premedication
     Route: 042
     Dates: start: 20191018

REACTIONS (2)
  - Abdominal discomfort [Recovered/Resolved]
  - Coronavirus infection [Recovered/Resolved]

NARRATIVE: CASE EVENT DATE: 20220123
